FAERS Safety Report 25067482 (Version 1)
Quarter: 2025Q1

REPORT INFORMATION
  Report Type: Spontaneous
  Country: FR (occurrence: FR)
  Receive Date: 20250312
  Receipt Date: 20250312
  Transmission Date: 20250408
  Serious: Yes (Hospitalization)
  Sender: TAKEDA
  Company Number: None

PATIENT
  Age: 77 Year
  Sex: Female

DRUGS (10)
  1. BRINTELLIX [Suspect]
     Active Substance: VORTIOXETINE HYDROBROMIDE
     Indication: Affective disorder
     Dosage: 5 MILLIGRAM, QD
     Dates: start: 20241029, end: 20241221
  2. BRINTELLIX [Suspect]
     Active Substance: VORTIOXETINE HYDROBROMIDE
     Dosage: 10 MILLIGRAM, QD
     Dates: start: 20241222
  3. TIAPRIDE HYDROCHLORIDE [Suspect]
     Active Substance: TIAPRIDE HYDROCHLORIDE
     Indication: Agitation
     Dates: start: 20250106, end: 20250113
  4. RIVOTRIL [Suspect]
     Active Substance: CLONAZEPAM
     Indication: Pain
     Dosage: UNK, QD
     Dates: start: 20241226, end: 20250106
  5. RIVOTRIL [Suspect]
     Active Substance: CLONAZEPAM
     Dosage: UNK, QD
     Dates: start: 20250109, end: 20250110
  6. OXAZEPAM [Suspect]
     Active Substance: OXAZEPAM
     Indication: Anxiety
     Dosage: 30 MILLIGRAM, QD
     Dates: start: 20241026, end: 20250116
  7. OXAZEPAM [Suspect]
     Active Substance: OXAZEPAM
  8. METHADONE HYDROCHLORIDE [Suspect]
     Active Substance: METHADONE HYDROCHLORIDE
     Indication: Pain
     Dates: start: 20241207, end: 20250116
  9. ZOPICLONE [Suspect]
     Active Substance: ZOPICLONE
     Indication: Sleep disorder
     Dosage: 3.75 MILLIGRAM, QD
     Dates: start: 20241028, end: 20250110
  10. ZOPICLONE [Suspect]
     Active Substance: ZOPICLONE

REACTIONS (2)
  - Somnolence [Not Recovered/Not Resolved]
  - Product use in unapproved indication [Unknown]

NARRATIVE: CASE EVENT DATE: 20250110
